FAERS Safety Report 5307454-7 (Version None)
Quarter: 2007Q2

REPORT INFORMATION
  Report Type: 
  Country: None (occurrence: None)
  Receive Date: 20070425
  Receipt Date: 20070413
  Transmission Date: 20071010
  Serious: Yes (Hospitalization)
  Sender: FDA-Public Use
  Company Number: BE-ELI_LILLY_AND_COMPANY-BE200611003312

PATIENT
  Age: 62 Year
  Sex: Male
  Weight: 63.7 kg

DRUGS (2)
  1. GEMZAR [Suspect]
     Indication: LUNG ADENOCARCINOMA
     Dosage: 1200 MG/M2, UNK
     Route: 042
     Dates: start: 20050627, end: 20050905
  2. CISPLATIN [Concomitant]
     Indication: LUNG ADENOCARCINOMA
     Dosage: 80 MG/M2, OTHER
     Route: 065
     Dates: start: 20050627, end: 20050828

REACTIONS (1)
  - PULMONARY EMBOLISM [None]
